FAERS Safety Report 10717969 (Version 1)
Quarter: 2015Q1

REPORT INFORMATION
  Report Type: Spontaneous
  Country: AR (occurrence: AR)
  Receive Date: 20150116
  Receipt Date: 20150116
  Transmission Date: 20150721
  Serious: Yes (Death, Congenital Anomaly, Other)
  Sender: FDA-Public Use
  Company Number: AR-ROXANE LABORATORIES, INC.-2015-RO-00046RO

PATIENT
  Age: 1 Day
  Sex: Female
  Weight: 2 kg

DRUGS (5)
  1. AZATHIOPRINE. [Suspect]
     Active Substance: AZATHIOPRINE
     Indication: FOETAL EXPOSURE DURING PREGNANCY
     Route: 064
  2. MYCOPHENOLATE MOFETIL. [Suspect]
     Active Substance: MYCOPHENOLATE MOFETIL
     Indication: FOETAL EXPOSURE DURING PREGNANCY
     Route: 064
  3. CALCIUM CARBONATE. [Suspect]
     Active Substance: CALCIUM CARBONATE
     Indication: FOETAL EXPOSURE DURING PREGNANCY
     Route: 064
  4. PREDNISOLONE. [Suspect]
     Active Substance: PREDNISOLONE
     Indication: FOETAL EXPOSURE DURING PREGNANCY
     Route: 064
  5. HYDROXYCHLOROQUINE [Suspect]
     Active Substance: HYDROXYCHLOROQUINE
     Indication: FOETAL EXPOSURE DURING PREGNANCY
     Route: 064

REACTIONS (10)
  - Coloboma [Unknown]
  - Cleft lip and palate [Unknown]
  - Spine malformation [Unknown]
  - Death [Fatal]
  - Oesophageal atresia [Unknown]
  - Low birth weight baby [Unknown]
  - Hypertelorism of orbit [Unknown]
  - Microtia [Unknown]
  - Anomaly of external ear congenital [Unknown]
  - Patent ductus arteriosus [Unknown]
